FAERS Safety Report 5615906-5 (Version None)
Quarter: 2008Q1

REPORT INFORMATION
  Report Type: 
  Country: None (occurrence: None)
  Receive Date: 20080201
  Receipt Date: 20080117
  Transmission Date: 20080703
  Serious: Yes (Hospitalization)
  Sender: FDA-Public Use
  Company Number: 2008S1001016

PATIENT
  Age: 36 Year
  Sex: Male

DRUGS (9)
  1. CITALOPRAM HYDROBROMIDE [Suspect]
     Indication: DEPRESSION
  2. ATRACURIUM BESYLATE [Suspect]
     Indication: ENDOTRACHEAL INTUBATION
     Dosage: 40 MG;AS NEEDED;
  3. ISOFLURANE [Suspect]
     Indication: ANAESTHESIA
     Dosage: 1.3 %
  4. FENTANYL CITRATE [Suspect]
     Indication: GENERAL ANAESTHESIA
     Dosage: 100 UG; AS NEEDED;
  5. GLYCOPYRRONIUM (GLYCOPYRRONIUM) [Suspect]
     Dosage: 0.5 MG; AS NEEDED;
  6. KETOROLAC (KETOROLAC) [Suspect]
     Dosage: 30 MG; AS NEEDED;
  7. NEOSTIGMINE (NEOSTIGMINE) [Suspect]
     Indication: NEUROMUSCULAR BLOCKADE
     Dosage: 2.5 MG;AS NEEDED
  8. NITROUS OXIDE W/ OXYGEN [Suspect]
     Indication: ANAESTHESIA
  9. THIOPENTONE /00053401/ (THIOPENTAL) [Suspect]
     Indication: ANAESTHESIA
     Dosage: 450 MG;AS NEEDED;

REACTIONS (2)
  - COMA [None]
  - CONVERSION DISORDER [None]
